FAERS Safety Report 4815472-8 (Version None)
Quarter: 2005Q4

REPORT INFORMATION
  Report Type: 
  Country: None (occurrence: None)
  Receive Date: 20051028
  Receipt Date: 20051028
  Transmission Date: 20060501
  Serious: Yes (Death, Life-Threatening, Hospitalization, Disabling, Other)
  Sender: FDA-Public Use
  Company Number: None

PATIENT
  Age: 27 Year
  Sex: Female
  Weight: 214.0978 kg

DRUGS (2)
  1. BENZOTROPINE 1 MG TABLETS [Suspect]
  2. RISPERDAL [Suspect]

REACTIONS (6)
  - FEELING ABNORMAL [None]
  - INSOMNIA [None]
  - NERVOUSNESS [None]
  - NIGHTMARE [None]
  - RASH [None]
  - SALIVARY HYPERSECRETION [None]
